FAERS Safety Report 14236680 (Version 1)
Quarter: 2017Q4

REPORT INFORMATION
  Report Type: Report from Study
  Country: CO (occurrence: CO)
  Receive Date: 20171129
  Receipt Date: 20171129
  Transmission Date: 20180321
  Serious: Yes (Hospitalization, Other)
  Sender: FDA-Public Use
  Company Number: CO-ELI_LILLY_AND_COMPANY-CO201711009370

PATIENT
  Age: 38 Year
  Sex: Female

DRUGS (1)
  1. CETUXIMAB. [Suspect]
     Active Substance: CETUXIMAB
     Indication: COLORECTAL CANCER METASTATIC
     Dosage: 700 MG/M2, EVERY 2 WEEKS
     Route: 042
     Dates: start: 20170526

REACTIONS (6)
  - Off label use [Unknown]
  - General physical health deterioration [Unknown]
  - Apathy [Unknown]
  - Weight decreased [Unknown]
  - Pain [Unknown]
  - Dehydration [Unknown]

NARRATIVE: CASE EVENT DATE: 2017
